FAERS Safety Report 23432369 (Version 1)
Quarter: 2024Q1

REPORT INFORMATION
  Report Type: Report from Study
  Country: MA (occurrence: MA)
  Receive Date: 20240123
  Receipt Date: 20240123
  Transmission Date: 20240410
  Serious: Yes (Other)
  Sender: FDA-Public Use
  Company Number: MA-JNJFOC-20240141956

PATIENT

DRUGS (1)
  1. REMICADE [Suspect]
     Active Substance: INFLIXIMAB
     Indication: Inflammatory bowel disease
     Route: 041

REACTIONS (10)
  - Neuropathy peripheral [Unknown]
  - Respiratory disorder [Unknown]
  - Tuberculosis [Unknown]
  - Bacterial infection [Unknown]
  - Infusion related reaction [Unknown]
  - Arthralgia [Unknown]
  - Blood disorder [Unknown]
  - Skin disorder [Unknown]
  - Nervous system disorder [Unknown]
  - Pyrexia [Unknown]
